FAERS Safety Report 5546398-2 (Version None)
Quarter: 2007Q4

REPORT INFORMATION
  Report Type: 
  Country: None (occurrence: None)
  Receive Date: 20071123
  Receipt Date: 20061103
  Transmission Date: 20080405
  Serious: Yes (Hospitalization)
  Sender: FDA-Public Use
  Company Number: US-JNJFOC-20061102334

PATIENT
  Age: 92 Year
  Sex: Male

DRUGS (4)
  1. LEVAQUIN [Suspect]
     Indication: DRUG USE FOR UNKNOWN INDICATION
     Dosage: ORAL
     Route: 048
     Dates: start: 20061101
  2. BLOOD PRESSURE MEDICATION (ANTIHYPERTENSIVES) UNSPECIFIED [Concomitant]
  3. ARICEPT (DONEPEZIL HYDROCHLORIDE) UNSPECIFIED [Concomitant]
  4. KETOCONAZOLE (KETOCONAZOLE) UNSPECIFIED [Concomitant]

REACTIONS (1)
  - STEVENS-JOHNSON SYNDROME [None]
